FAERS Safety Report 5101960-6 (Version None)
Quarter: 2006Q3

REPORT INFORMATION
  Report Type: 
  Country: None (occurrence: None)
  Receive Date: 20060907
  Receipt Date: 20060824
  Transmission Date: 20061208
  Serious: Yes (Hospitalization)
  Sender: FDA-Public Use
  Company Number: 06-000914

PATIENT
  Age: 17 Year
  Sex: Female
  Weight: 56.7 kg

DRUGS (1)
  1. ESTROSTEP FE [Suspect]
     Indication: MENORRHAGIA
     Dosage: 20/30/35 000 UG, QD,ORAL
     Route: 048
     Dates: start: 20040101, end: 20060701

REACTIONS (5)
  - DYSARTHRIA [None]
  - HYPOACUSIS [None]
  - HYPOAESTHESIA [None]
  - METRORRHAGIA [None]
  - MIGRAINE WITH AURA [None]
